FAERS Safety Report 7441682-X (Version None)
Quarter: 2011Q2

REPORT INFORMATION
  Report Type: 
  Country: None (occurrence: None)
  Receive Date: 20110428
  Receipt Date: 20100416
  Transmission Date: 20111010
  Serious: No
  Sender: FDA-Public Use
  Company Number: A0855487A

PATIENT
  Age: 46 Year
  Sex: Female

DRUGS (2)
  1. NO CONCURRENT MEDICATION [Concomitant]
  2. AMERGE [Suspect]
     Indication: MIGRAINE
     Route: 048
     Dates: start: 20100321

REACTIONS (2)
  - DRUG INEFFECTIVE [None]
  - RASH [None]
